FAERS Safety Report 6596220-0 (Version None)
Quarter: 2010Q1

REPORT INFORMATION
  Report Type: 
  Country: None (occurrence: None)
  Receive Date: 20100223
  Receipt Date: 20100215
  Transmission Date: 20100710
  Serious: Yes (Other)
  Sender: FDA-Public Use
  Company Number: ES-ROCHE-685391

PATIENT
  Age: 31 Year
  Sex: Female

DRUGS (4)
  1. TAMIFLU [Suspect]
     Indication: ANTIVIRAL PROPHYLAXIS
     Route: 048
     Dates: start: 20091031, end: 20091102
  2. RELENZA [Suspect]
     Indication: ANTIVIRAL PROPHYLAXIS
     Route: 042
     Dates: start: 20091102, end: 20091107
  3. ENOXAPARIN SODIUM [Concomitant]
     Route: 058
     Dates: start: 20091031
  4. PANTOPRAZOLE [Concomitant]
     Dosage: FREQUENCY: UNKNOWN PER DAY
     Route: 042
     Dates: start: 20091031

REACTIONS (2)
  - CHOLESTASIS [None]
  - LEUKAEMOID REACTION [None]
